FAERS Safety Report 25185801 (Version 1)
Quarter: 2025Q2

REPORT INFORMATION
  Report Type: Other
  Country: US (occurrence: US)
  Receive Date: 20250410
  Receipt Date: 20250410
  Transmission Date: 20250716
  Serious: Yes (Death, Hospitalization, Other)
  Sender: ALVOGEN
  Company Number: US-ALVOGEN-2025096585

PATIENT
  Age: 11 Year
  Sex: Female

DRUGS (5)
  1. SERTRALINE [Suspect]
     Active Substance: SERTRALINE HYDROCHLORIDE
     Indication: Product used for unknown indication
     Route: 048
  2. BUPROPION [Suspect]
     Active Substance: BUPROPION
     Indication: Product used for unknown indication
     Route: 048
  3. HYDROXYZINE [Suspect]
     Active Substance: HYDROXYZINE HYDROCHLORIDE
     Indication: Product used for unknown indication
     Route: 048
  4. ACETAMINOPHEN [Suspect]
     Active Substance: ACETAMINOPHEN
     Indication: Product used for unknown indication
     Route: 048
  5. IBUPROFEN [Suspect]
     Active Substance: IBUPROFEN
     Indication: Product used for unknown indication
     Route: 048

REACTIONS (13)
  - Medication error [Fatal]
  - Hypoxia [Unknown]
  - Hypotension [Recovering/Resolving]
  - Intracranial pressure increased [Unknown]
  - Diabetes insipidus [Unknown]
  - Brain oedema [Unknown]
  - Brain herniation [Unknown]
  - Brain death [Unknown]
  - Confusional state [Unknown]
  - Hallucination [Unknown]
  - Seizure [Unknown]
  - Vomiting [Unknown]
  - Hyponatraemia [Recovered/Resolved]
